FAERS Safety Report 9407563 (Version 1)
Quarter: 2013Q3

REPORT INFORMATION
  Report Type: Spontaneous
  Country: BR (occurrence: BR)
  Receive Date: 20130718
  Receipt Date: 20130718
  Transmission Date: 20140515
  Serious: Yes (Hospitalization)
  Sender: FDA-Public Use
  Company Number: BR-ASTRAZENECA-2013SE52482

PATIENT
  Age: 59 Year
  Sex: Male
  Weight: 72 kg

DRUGS (7)
  1. NEXIUM [Suspect]
     Indication: GASTROOESOPHAGEAL REFLUX DISEASE
     Route: 048
     Dates: start: 2008, end: 2011
  2. NEXIUM [Suspect]
     Indication: GASTROOESOPHAGEAL REFLUX DISEASE
     Route: 048
     Dates: start: 2011, end: 20130620
  3. NEXIUM [Suspect]
     Indication: GASTROOESOPHAGEAL REFLUX DISEASE
     Route: 048
     Dates: start: 20130621
  4. BUDECORT AQUA [Suspect]
     Indication: ALLERGIC RESPIRATORY DISEASE
     Route: 045
     Dates: start: 2010
  5. BUDECORT AQUA [Suspect]
     Indication: ALLERGIC RESPIRATORY DISEASE
     Route: 045
     Dates: start: 2010
  6. SINGULAIR [Concomitant]
     Indication: ALLERGIC RESPIRATORY DISEASE
     Dosage: DAILY
     Dates: start: 2010
  7. PURAN T4 [Concomitant]
     Dosage: DAILY
     Dates: start: 1993

REACTIONS (5)
  - Bronchiectasis [Recovered/Resolved]
  - Allergic respiratory disease [Recovering/Resolving]
  - Reflux laryngitis [Not Recovered/Not Resolved]
  - Off label use [Not Recovered/Not Resolved]
  - Off label use [Not Recovered/Not Resolved]
